FAERS Safety Report 22100162 (Version 1)
Quarter: 2023Q1

REPORT INFORMATION
  Report Type: Spontaneous
  Country: US (occurrence: US)
  Receive Date: 20230315
  Receipt Date: 20230315
  Transmission Date: 20230418
  Serious: Yes (Hospitalization, Other)
  Sender: FDA-Public Use
  Company Number: US-MALLINCKRODT-T202300188

PATIENT
  Age: 75 Year
  Sex: Male
  Weight: 84 kg

DRUGS (4)
  1. CORTICOTROPIN [Suspect]
     Active Substance: CORTICOTROPIN
     Indication: Rheumatoid arthritis
     Dosage: 80 UNITS (1 MILLILITER), TWICE A WEEK
     Route: 058
     Dates: start: 201902
  2. CORTICOTROPIN [Suspect]
     Active Substance: CORTICOTROPIN
     Indication: Rheumatoid arthritis
     Dosage: 0.6 MILLILITER
     Route: 065
  3. CORTICOTROPIN [Suspect]
     Active Substance: CORTICOTROPIN
     Dosage: 0.7 MILLILITER
     Route: 065
  4. CEPHALEXIN [Concomitant]
     Active Substance: CEPHALEXIN
     Indication: Product used for unknown indication
     Dosage: UNK
     Route: 065

REACTIONS (5)
  - Sciatica [Not Recovered/Not Resolved]
  - Joint swelling [Unknown]
  - Skin atrophy [Not Recovered/Not Resolved]
  - Rash [Unknown]
  - Incorrect dose administered [Unknown]
